FAERS Safety Report 8221090 (Version 2)
Quarter: 2019Q2

REPORT INFORMATION
  Report Type: Spontaneous
  Country: CA (occurrence: CA)
  Receive Date: 20111102
  Receipt Date: 20190528
  Transmission Date: 20190711
  Serious: Yes (Other)
  Sender: FDA-Public Use
  Company Number: CA-PFIZER INC-2011265617

PATIENT
  Age: 32 Year
  Sex: Female

DRUGS (13)
  1. LYRICA [Suspect]
     Active Substance: PREGABALIN
     Dosage: 300 MG, 2X/DAY (300 MG AM AND 300 MG PM)
     Route: 048
     Dates: start: 201102, end: 201105
  2. ELAVIL [Suspect]
     Active Substance: AMITRIPTYLINE HYDROCHLORIDE
     Dosage: 10 MG, 2X/DAY
     Route: 048
     Dates: start: 2010, end: 2010
  3. OXYCONTIN [Concomitant]
     Active Substance: OXYCODONE HYDROCHLORIDE
     Dosage: 20 MG, 2X/DAY
     Route: 048
     Dates: start: 200902
  4. LYRICA [Suspect]
     Active Substance: PREGABALIN
     Dosage: 500 MG, DAILY (200 MG AM AND 300 MG PM)
     Route: 048
     Dates: start: 201101, end: 201102
  5. OXYCONTIN [Concomitant]
     Active Substance: OXYCODONE HYDROCHLORIDE
     Indication: BACK PAIN
     Dosage: 10 MG, 2X/DAY (LONG-ACTING, 10 MG EVERY 12 HOURS)
     Route: 048
     Dates: start: 200901, end: 200902
  6. CYMBALTA [Suspect]
     Active Substance: DULOXETINE HYDROCHLORIDE
     Dosage: 30 MG, 2X/DAY
     Route: 048
     Dates: start: 201007, end: 2010
  7. LYRICA [Suspect]
     Active Substance: PREGABALIN
     Dosage: 275 MG, DAILY (125 MG AM AND 150 MG PM)
     Route: 048
     Dates: start: 201004, end: 201005
  8. LYRICA [Suspect]
     Active Substance: PREGABALIN
     Dosage: 200 MG, 2X/DAY (200 MG AM AND 200 MG PM)
     Route: 048
     Dates: start: 201005, end: 201101
  9. LYRICA [Suspect]
     Active Substance: PREGABALIN
     Dosage: 300 MG, 3X/DAY
     Route: 048
     Dates: start: 201105
  10. LYRICA [Suspect]
     Active Substance: PREGABALIN
     Indication: BACK PAIN
     Dosage: 100 MG, 2X/DAY (100 MG AM AND 100 MG IN PM)
     Route: 048
     Dates: start: 200901, end: 201003
  11. MORPHINE [Concomitant]
     Active Substance: MORPHINE
     Indication: BACK PAIN
     Dosage: 10 MG, AS NEEDED
     Route: 048
     Dates: start: 201101
  12. LYRICA [Suspect]
     Active Substance: PREGABALIN
     Dosage: 125 MG, 2X/DAY (125 MG AM AND 125MG PM)
     Route: 048
     Dates: start: 201003, end: 201004
  13. OXYCODONE [Concomitant]
     Active Substance: OXYCODONE
     Indication: BACK PAIN
     Dosage: 30 MG, DAILY (5 MG EVERY 4 HOURS)
     Route: 048
     Dates: start: 200901

REACTIONS (11)
  - Oedema peripheral [Not Recovered/Not Resolved]
  - Irritability [Recovered/Resolved]
  - Off label use [Unknown]
  - Somnolence [Recovered/Resolved]
  - Fibromyalgia [Not Recovered/Not Resolved]
  - Dry mouth [Recovering/Resolving]
  - Drug ineffective [Unknown]
  - Fatigue [Recovered/Resolved]
  - Product use issue [Unknown]
  - Uterine mass [Recovered/Resolved]
  - Prescribed overdose [Unknown]

NARRATIVE: CASE EVENT DATE: 200901
